FAERS Safety Report 8578371-4 (Version None)
Quarter: 2012Q3

REPORT INFORMATION
  Report Type: 
  Country: None (occurrence: None)
  Receive Date: 20120808
  Receipt Date: 20120730
  Transmission Date: 20120928
  Serious: Yes (Hospitalization, Other)
  Sender: FDA-Public Use
  Company Number: US-BAYER-2011-080618

PATIENT
  Age: 27 Year
  Sex: Female
  Weight: 54 kg

DRUGS (4)
  1. YAZ [Suspect]
     Dosage: UNK
     Dates: start: 20070701, end: 20100201
  2. YASMIN [Suspect]
     Dosage: UNK
     Dates: start: 20040601
  3. VALTREX [Concomitant]
     Indication: PROPHYLAXIS
     Dosage: UNK
     Dates: start: 20070101
  4. ORTHO-NOVUM 1/35 [Concomitant]
     Dosage: UNK
     Dates: start: 20050907, end: 20070101

REACTIONS (8)
  - PAIN [None]
  - ANXIETY [None]
  - GENERAL PHYSICAL HEALTH DETERIORATION [None]
  - BILIARY DYSKINESIA [None]
  - CHOLELITHIASIS [None]
  - MENTAL DISORDER [None]
  - ABDOMINAL PAIN [None]
  - EMOTIONAL DISTRESS [None]
